FAERS Safety Report 15446595 (Version 1)
Quarter: 2018Q3

REPORT INFORMATION
  Report Type: Spontaneous
  Country: US (occurrence: US)
  Receive Date: 20180928
  Receipt Date: 20180928
  Transmission Date: 20181010
  Serious: No
  Sender: FDA-Public Use
  Company Number: US-AMGEN-USASP2018059115

PATIENT
  Age: 76 Year
  Sex: Female
  Weight: 48.98 kg

DRUGS (1)
  1. PROLIA [Suspect]
     Active Substance: DENOSUMAB
     Indication: OSTEOPOROSIS POSTMENOPAUSAL
     Dosage: 60 MG, Q6MO
     Route: 058
     Dates: start: 20180423, end: 20180423

REACTIONS (8)
  - Incorrect route of drug administration [Unknown]
  - Injection site warmth [Recovered/Resolved]
  - Injection site swelling [Recovered/Resolved]
  - Injection site discomfort [Recovered/Resolved]
  - Injection site atrophy [Unknown]
  - Injection site pain [Recovered/Resolved]
  - Injection site erythema [Recovered/Resolved]
  - Injection site discolouration [Recovered/Resolved]

NARRATIVE: CASE EVENT DATE: 20180430
